FAERS Safety Report 16349571 (Version 1)
Quarter: 2019Q2

REPORT INFORMATION
  Report Type: Spontaneous
  Country: LT (occurrence: LT)
  Receive Date: 20190523
  Receipt Date: 20190523
  Transmission Date: 20190711
  Serious: Yes (Life-Threatening, Hospitalization, Other)
  Sender: FDA-Public Use
  Company Number: LT-ELI_LILLY_AND_COMPANY-LT201905010981

PATIENT
  Age: 51 Year
  Sex: Female

DRUGS (2)
  1. INSULIN LISPRO [Suspect]
     Active Substance: INSULIN LISPRO
     Indication: TYPE 1 DIABETES MELLITUS
     Dosage: 12 INTERNATIONAL UNIT, TID
     Route: 065
  2. LANTUS [Suspect]
     Active Substance: INSULIN GLARGINE
     Indication: TYPE 1 DIABETES MELLITUS
     Dosage: 18 INTERNATIONAL UNIT, BID
     Route: 065

REACTIONS (6)
  - Diabetes mellitus inadequate control [Unknown]
  - Osteomyelitis [Unknown]
  - Pain in extremity [Unknown]
  - Hypoglycaemia [Unknown]
  - Diabetic foot [Recovering/Resolving]
  - Glycosylated haemoglobin increased [Unknown]
